FAERS Safety Report 8022663-4 (Version None)
Quarter: 2012Q1

REPORT INFORMATION
  Report Type: 
  Country: None (occurrence: None)
  Receive Date: 20120104
  Receipt Date: 20111227
  Transmission Date: 20120608
  Serious: Yes (Hospitalization)
  Sender: FDA-Public Use
  Company Number: JP-CEPHALON-2011002107

PATIENT
  Sex: Female
  Weight: 66 kg

DRUGS (9)
  1. ALLOPURINOL [Concomitant]
     Route: 048
     Dates: start: 20110413, end: 20110415
  2. SULFAMETHOXAZOLE AND TRIMETHOPRIM [Concomitant]
     Dates: start: 20110414, end: 20110430
  3. FLUCONAZOLE [Concomitant]
     Indication: INFECTION PROPHYLAXIS
     Route: 048
     Dates: start: 20110412, end: 20111021
  4. TEPRENONE [Concomitant]
     Dates: start: 20110914
  5. LANSOPRAZOLE [Concomitant]
     Dates: start: 20111007
  6. FAMOTIDINE [Concomitant]
     Route: 048
     Dates: start: 20110413, end: 20110415
  7. BENDAMUSTINE HCL [Suspect]
     Indication: B-CELL LYMPHOMA
     Route: 042
     Dates: start: 20110414
  8. RITUXIMAB [Concomitant]
     Dates: start: 20110413, end: 20110829
  9. LEVOFLOXACIN [Concomitant]
     Indication: INFECTION PROPHYLAXIS
     Route: 048
     Dates: start: 20110412, end: 20111002

REACTIONS (6)
  - ANAEMIA [None]
  - BONE MARROW FAILURE [None]
  - PLATELET COUNT DECREASED [None]
  - BLOOD CREATININE INCREASED [None]
  - WHITE BLOOD CELL COUNT DECREASED [None]
  - UPPER RESPIRATORY TRACT INFLAMMATION [None]
